FAERS Safety Report 20584975 (Version 1)
Quarter: 2022Q1

REPORT INFORMATION
  Report Type: Other
  Country: JP (occurrence: None)
  Receive Date: 20220311
  Receipt Date: 20220311
  Transmission Date: 20220424
  Serious: Yes (Death)
  Sender: FDA-Public Use
  Company Number: JP-ROCHE-3048298

PATIENT
  Age: 56 Year
  Sex: Female

DRUGS (11)
  1. ENTRECTINIB [Suspect]
     Active Substance: ENTRECTINIB
     Indication: Ovarian cancer
     Route: 048
     Dates: start: 201908
  2. BEVACIZUMAB [Suspect]
     Active Substance: BEVACIZUMAB
     Indication: Ovarian cancer
     Route: 065
  3. CISPLATIN [Suspect]
     Active Substance: CISPLATIN
     Indication: Ovarian cancer
     Route: 065
  4. PACLITAXEL [Suspect]
     Active Substance: PACLITAXEL
     Indication: Ovarian cancer
     Route: 065
  5. PACLITAXEL [Suspect]
     Active Substance: PACLITAXEL
     Route: 065
  6. PACLITAXEL [Suspect]
     Active Substance: PACLITAXEL
     Route: 065
  7. GEMCITABINE [Concomitant]
     Active Substance: GEMCITABINE
     Indication: Ovarian cancer
  8. TOPOTECAN HYDROCHLORIDE [Concomitant]
     Active Substance: TOPOTECAN HYDROCHLORIDE
     Indication: Ovarian cancer
  9. DOXORUBICIN [Concomitant]
     Active Substance: DOXORUBICIN
     Indication: Ovarian cancer
  10. ETOPOSIDE [Concomitant]
     Active Substance: ETOPOSIDE
     Indication: Ovarian cancer
     Route: 048
  11. NEDAPLATIN [Concomitant]
     Active Substance: NEDAPLATIN
     Indication: Ovarian cancer
     Route: 048

REACTIONS (4)
  - Disease progression [Fatal]
  - Dysgeusia [Unknown]
  - Metastases to liver [Unknown]
  - Drug ineffective [Unknown]
